FAERS Safety Report 14587861 (Version 1)
Quarter: 2018Q1

REPORT INFORMATION
  Report Type: Report from Study
  Country: CO (occurrence: CO)
  Receive Date: 20180301
  Receipt Date: 20180301
  Transmission Date: 20180509
  Serious: Yes (Hospitalization)
  Sender: FDA-Public Use
  Company Number: PHHY2018CO014952

PATIENT
  Sex: Male
  Weight: 80 kg

DRUGS (3)
  1. LOSARTAN. [Suspect]
     Active Substance: LOSARTAN
     Indication: BLOOD PRESSURE ABNORMAL
     Route: 065
  2. INSULIN [Concomitant]
     Active Substance: INSULIN NOS
     Indication: DIABETES MELLITUS
     Route: 065
  3. LUCENTIS [Suspect]
     Active Substance: RANIBIZUMAB
     Indication: MACULAR OEDEMA
     Dosage: 0.5 MG, QMO
     Route: 047
     Dates: start: 20160130

REACTIONS (7)
  - Pyrexia [Unknown]
  - Hypertension [Unknown]
  - Swelling [Unknown]
  - Erysipelas [Unknown]
  - Chronic kidney disease [Unknown]
  - Psychiatric symptom [Recovering/Resolving]
  - Inflammation [Unknown]
